FAERS Safety Report 11653167 (Version 1)
Quarter: 2015Q4

REPORT INFORMATION
  Report Type: Spontaneous
  Country: US (occurrence: US)
  Receive Date: 20151022
  Receipt Date: 20151022
  Transmission Date: 20160304
  Serious: Yes (Hospitalization, Other)
  Sender: FDA-Public Use
  Company Number: US-IMPAX LABORATORIES, INC-2015-IPXL-01030

PATIENT
  Age: 32 Year
  Sex: Male

DRUGS (1)
  1. OXYMORPHONE HYDROCHLORIDE ER [Suspect]
     Active Substance: OXYMORPHONE HYDROCHLORIDE
     Indication: DRUG ABUSE
     Dosage: UNK
     Route: 042

REACTIONS (5)
  - Thrombotic microangiopathy [Unknown]
  - Drug abuse [Unknown]
  - Intentional product use issue [Unknown]
  - Abscess [Not Recovered/Not Resolved]
  - Acute kidney injury [Unknown]
